FAERS Safety Report 5366281-5 (Version None)
Quarter: 2007Q2

REPORT INFORMATION
  Report Type: 
  Country: None (occurrence: None)
  Receive Date: 20070620
  Receipt Date: 20070620
  Transmission Date: 20071010
  Serious: No
  Sender: FDA-Public Use
  Company Number: None

PATIENT
  Age: 41 Year
  Sex: Female
  Weight: 90.7194 kg

DRUGS (2)
  1. CLINDAMYCIN 150 GREENSTONE [Suspect]
     Indication: TOOTH DISORDER
     Dosage: 150 3 PO
     Route: 048
     Dates: start: 20051220, end: 20051226
  2. CLINDAMYCIN 150 GREENSTONE [Suspect]
     Indication: TOOTH DISORDER
     Dosage: 150 3 PO
     Route: 048
     Dates: start: 20051226, end: 20051226

REACTIONS (3)
  - BURNING SENSATION [None]
  - GLOSSODYNIA [None]
  - TONGUE DISCOLOURATION [None]
